FAERS Safety Report 4731534-8 (Version None)
Quarter: 2005Q3

REPORT INFORMATION
  Report Type: 
  Country: None (occurrence: None)
  Receive Date: 20050721
  Receipt Date: 20050405
  Transmission Date: 20060218
  Serious: Yes (Other)
  Sender: FDA-Public Use
  Company Number: 2005027033

PATIENT
  Age: 41 Year
  Sex: Female

DRUGS (6)
  1. RELPAX [Suspect]
     Indication: MIGRAINE
  2. NEURONTIN [Concomitant]
  3. ZANAFLEX [Concomitant]
  4. WELLBUTRIN SR [Concomitant]
  5. ULTRACET [Concomitant]
  6. BACLOFEN [Concomitant]

REACTIONS (2)
  - CONDITION AGGRAVATED [None]
  - NEUROPATHIC PAIN [None]
